FAERS Safety Report 9461285 (Version 2)
Quarter: 2013Q3

REPORT INFORMATION
  Report Type: Spontaneous
  Country: US (occurrence: US)
  Receive Date: 20130816
  Receipt Date: 20130924
  Transmission Date: 20140515
  Serious: No
  Sender: FDA-Public Use
  Company Number: US-PFIZER INC-2013237351

PATIENT
  Age: 63 Year
  Sex: Female
  Weight: 70 kg

DRUGS (5)
  1. PRISTIQ [Suspect]
     Indication: DEPRESSION
     Dosage: 50 MG, 1X/DAY (QDAY)
     Route: 048
     Dates: start: 20130809, end: 20130815
  2. PRISTIQ [Suspect]
     Indication: MAJOR DEPRESSION
  3. XANAX [Concomitant]
     Indication: ANXIETY
     Dosage: UNK
  4. ALPRAZOLAM [Concomitant]
     Indication: ANXIETY
     Dosage: 1 MG, 4X/DAY
  5. CEREFOLIN NAC [Concomitant]
     Indication: COGNITIVE DISORDER
     Dosage: UNK, 1X/DAY

REACTIONS (5)
  - Nervousness [Recovered/Resolved]
  - Dyskinesia [Unknown]
  - Emotional distress [Unknown]
  - Agitation [Recovered/Resolved]
  - Drug ineffective [Unknown]
